FAERS Safety Report 9084924 (Version 1)
Quarter: 2013Q1

REPORT INFORMATION
  Report Type: Report from Study
  Country: US (occurrence: US)
  Receive Date: 20130131
  Receipt Date: 20130131
  Transmission Date: 20140127
  Serious: No
  Sender: FDA-Public Use
  Company Number: US-ABBOTT-12P-163-0996221-00

PATIENT
  Sex: Female

DRUGS (9)
  1. HUMIRA [Suspect]
     Indication: RHEUMATOID ARTHRITIS
     Dates: start: 2003, end: 2005
  2. HUMIRA [Suspect]
     Dates: start: 2005, end: 2007
  3. HUMIRA [Suspect]
     Dates: start: 2008, end: 20121013
  4. ARAVA [Suspect]
     Indication: PRODUCT USED FOR UNKNOWN INDICATION
     Dates: start: 2005, end: 2005
  5. METHOTREXATE [Concomitant]
     Indication: PRODUCT USED FOR UNKNOWN INDICATION
     Dosage: 2.5 MG X 4 TABS WEEKLY
  6. PROCARDIA [Concomitant]
     Indication: REYNOLD^S SYNDROME
     Dosage: 30 MG DAILY
  7. KLONOPIN [Concomitant]
     Indication: PRODUCT USED FOR UNKNOWN INDICATION
  8. ZEGERID [Concomitant]
     Indication: PRODUCT USED FOR UNKNOWN INDICATION
     Dosage: 20 MG DAILY
  9. EFFEXOR [Concomitant]
     Indication: PRODUCT USED FOR UNKNOWN INDICATION
     Dosage: 75 MG DAILY

REACTIONS (8)
  - Unevaluable event [Not Recovered/Not Resolved]
  - Cellulitis [Unknown]
  - Staphylococcal infection [Unknown]
  - Blood cholesterol increased [Unknown]
  - Breast cyst [Unknown]
  - Scar [Unknown]
  - Device malfunction [Unknown]
  - Incorrect dose administered [Unknown]
